FAERS Safety Report 6456562-6 (Version None)
Quarter: 2009Q4

REPORT INFORMATION
  Report Type: 
  Country: None (occurrence: None)
  Receive Date: 20091124
  Receipt Date: 20091124
  Transmission Date: 20100525
  Serious: Yes (Life-Threatening)
  Sender: FDA-Public Use
  Company Number: None

PATIENT
  Age: 55 Year
  Sex: Female
  Weight: 92.9874 kg

DRUGS (1)
  1. SOOTHE XP BAUSCH + LOMB [Suspect]
     Indication: DRY EYE
     Dosage: 2 DROPS EACH 8-HOURS OPHTHALMIC, RARELY
     Route: 047
     Dates: start: 20090720, end: 20091122

REACTIONS (4)
  - ANXIETY [None]
  - INSOMNIA [None]
  - PALPITATIONS [None]
  - PRODUCT QUALITY ISSUE [None]
